FAERS Safety Report 9411617 (Version 1)
Quarter: 2013Q3

REPORT INFORMATION
  Report Type: Spontaneous
  Country: US (occurrence: None)
  Receive Date: 20130718
  Receipt Date: 20130718
  Transmission Date: 20140515
  Serious: No
  Sender: FDA-Public Use
  Company Number: None

PATIENT
  Age: 68 Year
  Sex: Male

DRUGS (2)
  1. STIVARGA 40MG BAYER [Suspect]
     Dosage: 160MG QDX21D Q28D PO
     Route: 048
     Dates: start: 20130621, end: 20130716
  2. STIVARGA 40MG BAYER [Suspect]
     Dosage: 160MG QDX21D Q28D PO
     Route: 048
     Dates: start: 20130621, end: 20130716

REACTIONS (2)
  - Fatigue [None]
  - Weight decreased [None]
